FAERS Safety Report 10016326 (Version 2)
Quarter: 2014Q1

REPORT INFORMATION
  Report Type: Report from Study
  Country: DE (occurrence: DE)
  Receive Date: 20140317
  Receipt Date: 20140317
  Transmission Date: 20141002
  Serious: Yes (Death, Life-Threatening)
  Sender: FDA-Public Use
  Company Number: DE-BRISTOL-MYERS SQUIBB COMPANY-20471199

PATIENT
  Age: 35 Year
  Sex: Male
  Weight: 68 kg

DRUGS (23)
  1. DACLATASVIR [Suspect]
     Indication: HEPATITIS C
     Route: 048
     Dates: start: 201401
  2. ASUNAPREVIR [Suspect]
     Indication: HEPATITIS C
  3. ETOPOSIDE [Suspect]
     Indication: BURKITT^S LYMPHOMA
     Dosage: DAY 5,6?924 MG
     Route: 042
     Dates: start: 2014
  4. CYTARABINE [Suspect]
     Indication: BURKITT^S LYMPHOMA
     Dosage: 2.2 G/M2?DAY 6?7400 MG
     Dates: start: 2014
  5. VINDESINE [Suspect]
     Indication: BURKITT^S LYMPHOMA
     Dosage: DAY 2?5MG
     Route: 042
     Dates: start: 2014
  6. METHOTREXATE [Suspect]
     Indication: BURKITT^S LYMPHOMA
     Dosage: DAY 2?2775 MG
     Route: 042
     Dates: start: 2014
  7. RITUXIMAB [Suspect]
     Indication: BURKITT^S LYMPHOMA
     Dosage: DAY 1 ?693 MG
     Route: 042
     Dates: start: 2014
  8. SOFOSBUVIR [Concomitant]
     Indication: CHRONIC HEPATITIS C
     Route: 048
  9. TRUVADA [Concomitant]
  10. ISENTRESS [Concomitant]
  11. PANTOZOL [Concomitant]
  12. COTRIM [Concomitant]
  13. DIFLUCAN [Concomitant]
  14. CAPHOSOL [Concomitant]
  15. MCP [Concomitant]
  16. ZOFRAN [Concomitant]
  17. TAZOBAC [Concomitant]
  18. ZYVOXID [Concomitant]
  19. NEUPOGEN [Concomitant]
  20. CLEXANE [Concomitant]
  21. DEXAMETHASONE [Concomitant]
     Dosage: DAY 2-6
     Route: 048
  22. GRANULOCYTE COLONY-STIMULATING FACTOR NOS [Concomitant]
     Dosage: STARTING DAY 8?5 UG/KG
     Route: 058
  23. ACICLOVIR [Concomitant]

REACTIONS (1)
  - Bacterial sepsis [Fatal]
